FAERS Safety Report 25597126 (Version 1)
Quarter: 2025Q3

REPORT INFORMATION
  Report Type: Spontaneous
  Country: US (occurrence: US)
  Receive Date: 20250723
  Receipt Date: 20250723
  Transmission Date: 20251020
  Serious: Yes (Life-Threatening, Hospitalization, Other)
  Sender: AMGEN
  Company Number: US-AMGEN-USASP2025141080

PATIENT
  Age: 29 Year
  Sex: Male

DRUGS (2)
  1. RITUXIMAB [Suspect]
     Active Substance: RITUXIMAB
     Indication: Kaposi^s sarcoma
     Route: 065
  2. DOXORUBICIN [Concomitant]
     Active Substance: DOXORUBICIN
     Indication: Kaposi^s sarcoma

REACTIONS (4)
  - Pulmonary alveolar haemorrhage [Unknown]
  - Kaposi^s sarcoma [Unknown]
  - Respiratory failure [Unknown]
  - Off label use [Unknown]
